FAERS Safety Report 20166492 (Version 15)
Quarter: 2025Q1

REPORT INFORMATION
  Report Type: Report from Study
  Country: US (occurrence: US)
  Receive Date: 20211209
  Receipt Date: 20250327
  Transmission Date: 20250409
  Serious: Yes (Hospitalization, Other)
  Sender: TAKEDA
  Company Number: US-TAKEDA-US202003341

PATIENT
  Sex: Female

DRUGS (3)
  1. HUMAN IMMUNOGLOBULIN G [Suspect]
     Active Substance: HUMAN IMMUNOGLOBULIN G
     Indication: Primary immunodeficiency syndrome
  2. HUMAN IMMUNOGLOBULIN G [Suspect]
     Active Substance: HUMAN IMMUNOGLOBULIN G
     Dosage: 50 GRAM, MONTHLY
  3. ROCEPHIN [Suspect]
     Active Substance: CEFTRIAXONE SODIUM
     Indication: Product used for unknown indication

REACTIONS (28)
  - COVID-19 [Recovering/Resolving]
  - Arteriosclerosis coronary artery [Unknown]
  - Lymphoma [Unknown]
  - Pneumonia [Recovered/Resolved]
  - Hepatic lesion [Unknown]
  - Throat lesion [Unknown]
  - Poor venous access [Unknown]
  - Immunisation reaction [Unknown]
  - Adrenal mass [Unknown]
  - Feeling cold [Unknown]
  - Chills [Recovering/Resolving]
  - Joint injury [Unknown]
  - Sensory loss [Unknown]
  - Weight decreased [Unknown]
  - Viral infection [Unknown]
  - Obstruction [Recovering/Resolving]
  - Constipation [Unknown]
  - Fall [Unknown]
  - Nasopharyngitis [Unknown]
  - Device leakage [Unknown]
  - Product dose omission issue [Unknown]
  - Drug hypersensitivity [Unknown]
  - Sinusitis [Unknown]
  - White blood cell count decreased [Unknown]
  - Muscle spasms [Unknown]
  - Back pain [Unknown]
  - Cough [Recovering/Resolving]
  - Pain in extremity [Unknown]
